FAERS Safety Report 25275032 (Version 2)
Quarter: 2025Q2

REPORT INFORMATION
  Report Type: Spontaneous
  Country: RU (occurrence: RU)
  Receive Date: 20250506
  Receipt Date: 20250519
  Transmission Date: 20250717
  Serious: Yes (Other)
  Sender: MYLAN
  Company Number: RU-MYLANLABS-2025M1037900

PATIENT
  Age: 43 Year
  Sex: Male
  Weight: 102 kg

DRUGS (2)
  1. ATORVASTATIN CALCIUM [Suspect]
     Active Substance: ATORVASTATIN CALCIUM
     Indication: Cardiovascular event prophylaxis
     Dosage: 10 MILLIGRAM, QD (DAILY)
     Dates: start: 20250401, end: 20250413
  2. TRYPTOPHAN [Suspect]
     Active Substance: TRYPTOPHAN
     Indication: Anxiety
     Dosage: 1 DOSAGE FORM, QD (OCCASIONALLY, NOT EVERY DAY)
     Dates: start: 20250401, end: 20250512

REACTIONS (9)
  - Hypertensive crisis [Recovered/Resolved]
  - Arrhythmia [Not Recovered/Not Resolved]
  - Fear [Recovered/Resolved]
  - Tremor [Recovered/Resolved]
  - Tachycardia [Recovered/Resolved]
  - Presyncope [Recovered/Resolved]
  - Hypertension [Not Recovered/Not Resolved]
  - Rash erythematous [Recovered/Resolved]
  - Nausea [Recovered/Resolved]

NARRATIVE: CASE EVENT DATE: 20250413
